FAERS Safety Report 7082192-1 (Version None)
Quarter: 2010Q4

REPORT INFORMATION
  Report Type: 
  Country: None (occurrence: None)
  Receive Date: 20101103
  Receipt Date: 20101020
  Transmission Date: 20110411
  Serious: Yes (Other)
  Sender: FDA-Public Use
  Company Number: US-AMGEN-USASP2010000528

PATIENT

DRUGS (1)
  1. NPLATE [Suspect]
     Indication: IDIOPATHIC THROMBOCYTOPENIC PURPURA
     Dates: start: 20091019, end: 20100413

REACTIONS (5)
  - HAEMORRHAGE [None]
  - LEUKAEMIA [None]
  - MYELODYSPLASTIC SYNDROME [None]
  - MYELOFIBROSIS [None]
  - THROMBOCYTOPENIA [None]
